FAERS Safety Report 25158565 (Version 3)
Quarter: 2025Q2

REPORT INFORMATION
  Report Type: Spontaneous
  Country: US (occurrence: US)
  Receive Date: 20250404
  Receipt Date: 20250411
  Transmission Date: 20250717
  Serious: No
  Sender: ALEXION PHARMACEUTICALS
  Company Number: US-AstraZeneca-CH-00838478A

PATIENT
  Age: 72 Year

DRUGS (2)
  1. ULTOMIRIS [Suspect]
     Active Substance: RAVULIZUMAB-CWVZ
     Indication: Myasthenia gravis
  2. PYRIDOSTIGMINE [Concomitant]
     Active Substance: PYRIDOSTIGMINE
     Route: 065

REACTIONS (6)
  - Throat irritation [Not Recovered/Not Resolved]
  - Fall [Recovered/Resolved]
  - Dysphonia [Not Recovered/Not Resolved]
  - Nasopharyngitis [Recovering/Resolving]
  - Symptom recurrence [Unknown]
  - Therapeutic response shortened [Unknown]
